FAERS Safety Report 21975932 (Version 1)
Quarter: 2023Q1

REPORT INFORMATION
  Report Type: Other
  Country: US (occurrence: None)
  Receive Date: 20230210
  Receipt Date: 20230210
  Transmission Date: 20230418
  Serious: Yes (Other)
  Sender: FDA-Public Use
  Company Number: US-ROCHE-3282070

PATIENT
  Age: 79 Year
  Sex: Female

DRUGS (3)
  1. XELODA [Suspect]
     Active Substance: CAPECITABINE
     Indication: Colorectal cancer metastatic
     Dosage: TAKE 3 TABLET(S) BY MOUTH ALONG WITH 2-150MG TABLETS FOR A TOTAL OF 1800MG TWICE A DAY FOR 21 DAYS F
     Route: 048
  2. XELODA [Suspect]
     Active Substance: CAPECITABINE
     Indication: Colon cancer
     Dosage: TAKE 2 TABLET(S) BY MOUTH ALONG WITH 3-500MG TABLETS FOR A TOTAL OF 1800MG TWICE A DAY FOR 21 DAYS F
     Route: 048
  3. XELODA [Suspect]
     Active Substance: CAPECITABINE
     Indication: Rectosigmoid cancer

REACTIONS (2)
  - Malignant gastrointestinal obstruction [Unknown]
  - Diarrhoea [Recovered/Resolved]
